FAERS Safety Report 9681688 (Version 2)
Quarter: 2013Q4

REPORT INFORMATION
  Report Type: Spontaneous
  Country: US (occurrence: US)
  Receive Date: 20131111
  Receipt Date: 20131111
  Transmission Date: 20140711
  Serious: Yes (Hospitalization, Other)
  Sender: FDA-Public Use
  Company Number: US-CELGENEUS-163-POMAL-13105269

PATIENT
  Age: 69 Year
  Sex: Male

DRUGS (6)
  1. POMALYST [Suspect]
     Indication: PLASMA CELL MYELOMA
     Dosage: 4 MILLIGRAM
     Route: 048
     Dates: start: 201305
  2. POMALYST [Suspect]
     Dosage: 4 MILLIGRAM
     Route: 048
     Dates: start: 20130913, end: 20131016
  3. THALOMID [Suspect]
     Indication: PLASMA CELL MYELOMA
     Dosage: 50 MILLIGRAM
     Route: 048
     Dates: start: 200812, end: 200903
  4. THALOMID [Suspect]
     Dosage: 200-100 MG
     Route: 048
     Dates: start: 201301, end: 201305
  5. REVLIMID [Suspect]
     Indication: PLASMA CELL MYELOMA
     Dosage: 10 MILLIGRAM
     Route: 048
     Dates: start: 200911, end: 2010
  6. REVLIMID [Suspect]
     Dosage: 15-10MG
     Route: 048
     Dates: start: 201009, end: 201111

REACTIONS (3)
  - Bladder cancer [Unknown]
  - Platelet count decreased [Unknown]
  - Pyrexia [Unknown]
